FAERS Safety Report 14575931 (Version 1)
Quarter: 2018Q1

REPORT INFORMATION
  Report Type: Spontaneous
  Country: BG (occurrence: BG)
  Receive Date: 20180227
  Receipt Date: 20180227
  Transmission Date: 20180509
  Serious: Yes (Death, Other)
  Sender: FDA-Public Use
  Company Number: BG-AMGEN-BGRNI2018024243

PATIENT
  Age: 55 Year
  Sex: Female
  Weight: 104 kg

DRUGS (4)
  1. CISPLATIN. [Concomitant]
     Active Substance: CISPLATIN
     Indication: NON-SMALL CELL LUNG CANCER
     Dosage: 150 MG, Q3WK (LAST DOSE PRIOR TO SAE: 20-MAY-2016)
     Route: 042
     Dates: start: 20160316, end: 20160520
  2. ALIMTA [Concomitant]
     Active Substance: PEMETREXED DISODIUM
     Indication: NON-SMALL CELL LUNG CANCER
     Dosage: 1000 MG, Q3WK(LAST DOSE PRIOR TO SAE: 20-MAY-2016)
     Route: 042
     Dates: start: 20160316, end: 20160520
  3. NEULASTA [Suspect]
     Active Substance: PEGFILGRASTIM
     Indication: NEUTROPENIA
     Dosage: 6 MG, Q3WK  (LONQUEX 6 MG OR NEULASTA 6 MG OR PLACEBO. LAST DOSE PRIOR TO SAE: 21-MAY-2016)
     Route: 058
     Dates: start: 20160317, end: 20160521
  4. LONQUEX [Suspect]
     Active Substance: LIPEGFILGRASTIM
     Indication: NEUTROPENIA
     Dosage: 6 MG, Q3WK (LONQUEX 6 MG OR NEULASTA 6 MG OR PLACEBO. LAST DOSE PRIOR TO SAE: 21-MAY-2016)
     Route: 058
     Dates: start: 20160317, end: 20160521

REACTIONS (1)
  - Non-small cell lung cancer [Fatal]
